FAERS Safety Report 7360067-8 (Version None)
Quarter: 2011Q1

REPORT INFORMATION
  Report Type: 
  Country: None (occurrence: None)
  Receive Date: 20110317
  Receipt Date: 20110219
  Transmission Date: 20110831
  Serious: No
  Sender: FDA-Public Use
  Company Number: US-B.I. PHARMACEUTICALS,INC./RIDGEFIELD-2011-BP-06362BP

PATIENT
  Sex: Female

DRUGS (11)
  1. CALCITONIN [Concomitant]
     Indication: OSTEOARTHRITIS
     Dosage: 200 U
     Route: 045
     Dates: start: 19800101
  2. HYDROCHLOROTHIAZIDE [Concomitant]
     Indication: OEDEMA PERIPHERAL
     Dates: start: 19800101
  3. LISINOPRIL [Concomitant]
     Indication: HYPERTENSION
     Dosage: 30 MG
     Dates: start: 20080101
  4. PRADAXA [Suspect]
     Indication: ATRIAL FIBRILLATION
     Dosage: 300 MG
     Route: 048
     Dates: start: 20110207
  5. PENICILLIN V POTASSIUM [Concomitant]
     Indication: RHEUMATIC FEVER
     Dosage: 250 MG
     Dates: start: 19600101
  6. LOVASTATIN [Concomitant]
     Indication: BLOOD CHOLESTEROL INCREASED
     Dosage: 40 MG
     Dates: start: 20000101
  7. HYDROCHLOROTHIAZIDE [Concomitant]
  8. AMLODIPINE [Concomitant]
     Indication: HYPERTENSION
     Dosage: 10 MG
     Dates: start: 20080101
  9. FAMOTIDINE [Concomitant]
     Indication: GASTRIC DISORDER
     Dosage: 40 MG
     Dates: start: 19900101
  10. ATENOLOL [Concomitant]
     Indication: ATRIAL FIBRILLATION
     Dosage: 100 MG
     Dates: start: 20101204
  11. KLOR-CON [Concomitant]
     Indication: SUPPLEMENTATION THERAPY
     Dosage: 10 MG
     Dates: start: 19800101

REACTIONS (3)
  - DEHYDRATION [None]
  - JOINT SWELLING [None]
  - PRURITUS [None]
